FAERS Safety Report 8889652 (Version 1)
Quarter: 2012Q4

REPORT INFORMATION
  Report Type: Spontaneous
  Country: US (occurrence: None)
  Receive Date: 20121105
  Receipt Date: 20121105
  Transmission Date: 20130627
  Serious: Yes (Life-Threatening)
  Sender: FDA-Public Use
  Company Number: None

PATIENT
  Age: 46 Year
  Sex: Male
  Weight: 83.92 kg

DRUGS (1)
  1. ANDROGEL [Suspect]
     Indication: LOSS OF ENERGY
     Dosage: 6 - 8 pumps every morning top
     Route: 061
     Dates: start: 20091001, end: 20120815

REACTIONS (4)
  - Blood pressure increased [None]
  - Heart rate increased [None]
  - Cataract [None]
  - Visual acuity reduced [None]
